FAERS Safety Report 10227662 (Version 1)
Quarter: 2014Q2

REPORT INFORMATION
  Report Type: Report from Study
  Country: US (occurrence: US)
  Receive Date: 20140610
  Receipt Date: 20140610
  Transmission Date: 20141212
  Serious: Yes (Other)
  Sender: FDA-Public Use
  Company Number: US-ABBVIE-14P-163-1243478-00

PATIENT
  Sex: Male
  Weight: 158.9 kg

DRUGS (6)
  1. HUMIRA [Suspect]
     Indication: ANKYLOSING SPONDYLITIS
  2. HUMIRA [Suspect]
     Dates: start: 201101, end: 201103
  3. ISOCONAZOLE [Suspect]
     Indication: HISTOPLASMOSIS
  4. SPORANOX [Suspect]
     Indication: HISTOPLASMOSIS
  5. VITAMIN B [Concomitant]
     Indication: PRODUCT USED FOR UNKNOWN INDICATION
  6. TESTOSTERONE [Concomitant]
     Indication: PRODUCT USED FOR UNKNOWN INDICATION
     Route: 050

REACTIONS (4)
  - Pulmonary mass [Recovered/Resolved]
  - Nodule [Recovered/Resolved]
  - Histoplasmosis [Recovered/Resolved]
  - Renal impairment [Recovered/Resolved]
